FAERS Safety Report 5796535-X (Version None)
Quarter: 2008Q3

REPORT INFORMATION
  Report Type: 
  Country: None (occurrence: None)
  Receive Date: 20080701
  Receipt Date: 20080701
  Transmission Date: 20090109
  Serious: Yes (Hospitalization)
  Sender: FDA-Public Use
  Company Number: PHHO2006EE20134

PATIENT
  Sex: Female
  Weight: 62 kg

DRUGS (3)
  1. ACLASTA/ZOLEDRONATE T29581+A+SOLINJ+OS [Suspect]
     Indication: OSTEOPOROSIS
     Dosage: 5MG
     Dates: start: 20060306, end: 20060916
  2. VITAMIN D [Concomitant]
     Indication: OSTEOPOROSIS
  3. CALCIUM [Concomitant]
     Indication: OSTEOPOROSIS

REACTIONS (5)
  - FISTULA [None]
  - OSTEOMYELITIS CHRONIC [None]
  - OSTEOMYELITIS DRAINAGE [None]
  - SEQUESTRECTOMY [None]
  - STAPHYLOCOCCAL BACTERAEMIA [None]
